FAERS Safety Report 8212607-4 (Version None)
Quarter: 2012Q1

REPORT INFORMATION
  Report Type: 
  Country: None (occurrence: None)
  Receive Date: 20120315
  Receipt Date: 20120307
  Transmission Date: 20120608
  Serious: Yes (Hospitalization)
  Sender: FDA-Public Use
  Company Number: US-BAYER-2011-063074

PATIENT
  Age: 34 Year
  Sex: Female
  Weight: 65.76 kg

DRUGS (3)
  1. SONATA [Concomitant]
  2. YAZ [Suspect]
     Indication: CONTRACEPTION
     Dosage: UNK
     Dates: start: 20071001, end: 20080401
  3. ORTHO TRI-CYCLEN [Concomitant]
     Dosage: UNK UNK, QD
     Dates: start: 20080101

REACTIONS (4)
  - DYSPNOEA [None]
  - CHEST PAIN [None]
  - CHOLECYSTITIS CHRONIC [None]
  - BILIARY COLIC [None]
